FAERS Safety Report 16618597 (Version 3)
Quarter: 2019Q3

REPORT INFORMATION
  Report Type: Report from Study
  Country: KR (occurrence: KR)
  Receive Date: 20190723
  Receipt Date: 20190909
  Transmission Date: 20191004
  Serious: Yes (Hospitalization)
  Sender: FDA-Public Use
  Company Number: KR-ROCHE-2271860

PATIENT
  Age: 47 Year
  Sex: Male
  Weight: 70.1 kg

DRUGS (25)
  1. ROVELITO [Concomitant]
     Indication: HYPERTENSION
     Dosage: 300/20 MG
     Route: 065
     Dates: start: 2017, end: 20190131
  2. TYLENOL [Concomitant]
     Active Substance: ACETAMINOPHEN
     Indication: PYREXIA
     Route: 048
     Dates: start: 20190129, end: 20190226
  3. MACPERAN [Concomitant]
     Active Substance: METOCLOPRAMIDE HYDROCHLORIDE
     Indication: ABDOMINAL DISCOMFORT
     Route: 065
     Dates: start: 20190221, end: 20190225
  4. DUPHALAC EASY [Concomitant]
     Route: 065
     Dates: start: 20190223
  5. RO6874281 (FAP IL2V MAB) [Suspect]
     Active Substance: SIMLUKAFUSP ALFA
     Indication: PANCREATIC CARCINOMA METASTATIC
     Dosage: THIS WAS ALSO MOST RECENT MOST FOR 1ST EPI OF TOTAL BILIRUBIN INCREASED?DATE OF MOST RECENT DOSE OF
     Route: 042
     Dates: start: 20190129
  6. MAGNESIUM SULFATE. [Concomitant]
     Active Substance: MAGNESIUM SULFATE
     Indication: PROPHYLAXIS
     Route: 065
     Dates: start: 20190201, end: 20190201
  7. LIPITOR [Concomitant]
     Active Substance: ATORVASTATIN CALCIUM
     Indication: HYPERLIPIDAEMIA
     Route: 065
     Dates: start: 20190201
  8. ATEZOLIZUMAB. [Suspect]
     Active Substance: ATEZOLIZUMAB
     Indication: PANCREATIC CARCINOMA METASTATIC
     Dosage: THIS WAS MOST RECENT MOST FOR 1ST EPI OF TOTAL BILIRUBIN INCREASED?DATE OF MOST RECENT DOSE OF ATEZO
     Route: 041
     Dates: start: 20190129
  9. ESOMEPRAZOLE. [Concomitant]
     Active Substance: ESOMEPRAZOLE MAGNESIUM
     Indication: PROPHYLAXIS
     Route: 065
     Dates: start: 20190116
  10. ZEMIMET [Concomitant]
     Indication: DIABETES MELLITUS
     Dosage: 25/500 MG
     Route: 065
     Dates: start: 2017
  11. NAXEN-F [Concomitant]
     Indication: PYREXIA
     Route: 048
     Dates: start: 20190129, end: 20190226
  12. GASTER [FAMOTIDINE] [Concomitant]
     Indication: ABDOMINAL DISCOMFORT
     Route: 065
     Dates: start: 20190129, end: 20190220
  13. MACPERAN [Concomitant]
     Active Substance: METOCLOPRAMIDE HYDROCHLORIDE
     Indication: NAUSEA
     Route: 065
     Dates: start: 20190220, end: 20190220
  14. PENIRAMIN [Concomitant]
     Indication: NAUSEA
     Route: 065
     Dates: start: 20190220, end: 20190220
  15. TARGIN [Concomitant]
     Active Substance: NALOXONE HYDROCHLORIDE\OXYCODONE HYDROCHLORIDE
     Indication: TUMOUR PAIN
     Route: 065
     Dates: start: 20190312
  16. DIABEX [Concomitant]
     Active Substance: METFORMIN HYDROCHLORIDE
     Indication: DIABETES MELLITUS
     Route: 065
     Dates: start: 2017
  17. PENIRAMIN [Concomitant]
     Route: 065
     Dates: start: 20190129, end: 20190220
  18. GASTER [FAMOTIDINE] [Concomitant]
     Route: 065
     Dates: start: 20190131, end: 20190131
  19. PHAZYME [SIMETICONE] [Concomitant]
     Indication: ABDOMINAL DISCOMFORT
     Route: 065
     Dates: start: 20190130, end: 20190130
  20. SUCRALFATE. [Concomitant]
     Active Substance: SUCRALFATE
     Indication: ABDOMINAL DISCOMFORT
     Route: 065
     Dates: start: 20190207
  21. NORZYME [Concomitant]
     Indication: PROPHYLAXIS
     Route: 065
     Dates: start: 20180710
  22. NORMAL SALINE [Concomitant]
     Active Substance: SODIUM CHLORIDE
     Route: 065
     Dates: start: 20190129, end: 20190220
  23. DEXTROSE 5% [Concomitant]
     Active Substance: DEXTROSE
     Route: 065
     Dates: start: 20190117, end: 20190117
  24. ULTRACET SEMI [Concomitant]
     Indication: TUMOUR PAIN
     Route: 065
     Dates: start: 20181219, end: 20190312
  25. PHAZYME [SIMETICONE] [Concomitant]
     Route: 065
     Dates: start: 20190221, end: 20190225

REACTIONS (1)
  - Liver function test increased [Recovered/Resolved]

NARRATIVE: CASE EVENT DATE: 20190130
